FAERS Safety Report 13917762 (Version 1)
Quarter: 2017Q3

REPORT INFORMATION
  Report Type: Spontaneous
  Country: DE (occurrence: DE)
  Receive Date: 20170829
  Receipt Date: 20170829
  Transmission Date: 20171127
  Serious: Yes (Other)
  Sender: FDA-Public Use
  Company Number: DE-EMCURE PHARMS-2017HTG00243

PATIENT

DRUGS (2)
  1. CARMUSTINE [Suspect]
     Active Substance: CARMUSTINE
     Indication: GLIOBLASTOMA
  2. SYSTEMIC CHEMOTHERAPY [Concomitant]
     Route: 065

REACTIONS (1)
  - Brain abscess [Unknown]
